FAERS Safety Report 22156966 (Version 1)
Quarter: 2023Q1

REPORT INFORMATION
  Report Type: Spontaneous
  Country: IT (occurrence: IT)
  Receive Date: 20230330
  Receipt Date: 20230330
  Transmission Date: 20230418
  Serious: Yes (Other)
  Sender: FDA-Public Use
  Company Number: IT-002147023-NVSC2023IT055087

PATIENT
  Sex: Male

DRUGS (8)
  1. BOSUTINIB [Suspect]
     Active Substance: BOSUTINIB
     Indication: Chronic myeloid leukaemia
     Dosage: 300 MG, 1X/DAY
     Route: 065
     Dates: start: 20200922, end: 202212
  2. DASATINIB [Suspect]
     Active Substance: DASATINIB
     Indication: Chronic myeloid leukaemia
     Dosage: 50 MG
     Route: 065
     Dates: start: 202212
  3. DASATINIB [Suspect]
     Active Substance: DASATINIB
     Dosage: 100 MG, 1X/DAY
     Route: 065
     Dates: start: 201811, end: 201901
  4. FOLIC ACID [Concomitant]
     Active Substance: FOLIC ACID
     Dosage: 1 DF, 1X/DAY (IN THE EVENING BEFORE DINNER)
  5. FEBUXOSTAT [Concomitant]
     Active Substance: FEBUXOSTAT
     Dosage: 1 DF, 1X/DAY (10 P.M)
  6. MICARDIS [Concomitant]
     Active Substance: TELMISARTAN
     Dosage: 1 DF, DAILY (8-20 HOURS)
  7. HERBALS\SAW PALMETTO [Concomitant]
     Active Substance: HERBALS\SAW PALMETTO
     Dosage: 1 DF, 1X/DAY
  8. CETIRIZINE HYDROCHLORIDE [Concomitant]
     Active Substance: CETIRIZINE HYDROCHLORIDE
     Dosage: 1 DF, AS NEEDED

REACTIONS (3)
  - Atrial fibrillation [Recovered/Resolved]
  - Retinal vein thrombosis [Recovered/Resolved]
  - Neoplasm progression [Unknown]
